FAERS Safety Report 5698097-4 (Version None)
Quarter: 2008Q2

REPORT INFORMATION
  Report Type: 
  Country: None (occurrence: None)
  Receive Date: 20080404
  Receipt Date: 20080404
  Transmission Date: 20081010
  Serious: Yes (Other)
  Sender: FDA-Public Use
  Company Number: None

PATIENT
  Sex: Female
  Weight: 95.709 kg

DRUGS (10)
  1. ALBUTEROL [Suspect]
     Indication: ASTHMA
     Dosage: 2 METERED DOSES EVERY FOUR HOURS INHAL
     Route: 055
  2. ASTELIN [Concomitant]
  3. LORATADINE [Concomitant]
  4. NASONEX [Concomitant]
  5. GUAIFENEX DM [Concomitant]
  6. EFFEXOR [Concomitant]
  7. TEGRETOL [Concomitant]
  8. ORTHO TRI-CYCLEN [Concomitant]
  9. NEXIUM [Concomitant]
  10. AVAPRO [Concomitant]

REACTIONS (2)
  - DENTAL CARIES [None]
  - DRY MOUTH [None]
